FAERS Safety Report 17523604 (Version 1)
Quarter: 2020Q1

REPORT INFORMATION
  Report Type: Spontaneous
  Country: CH (occurrence: CH)
  Receive Date: 20200311
  Receipt Date: 20200311
  Transmission Date: 20200409
  Serious: Yes (Hospitalization)
  Sender: FDA-Public Use
  Company Number: CH-TEVA-2020-CH-1196625

PATIENT
  Age: 73 Year
  Sex: Female

DRUGS (2)
  1. OXYCODONE [Suspect]
     Active Substance: OXYCODONE
     Indication: ANALGESIC INTERVENTION SUPPORTIVE THERAPY
     Dosage: ADMINISTERED AS REQUIRED
     Route: 048
  2. OXYCODONE/NALOXONE [Suspect]
     Active Substance: NALOXONE HYDROCHLORIDE\OXYCODONE HYDROCHLORIDE
     Indication: ANALGESIC INTERVENTION SUPPORTIVE THERAPY
     Dosage: 20/10MG TWICE DAILY
     Route: 065

REACTIONS (1)
  - Oesophageal motility disorder [Recovered/Resolved]
